FAERS Safety Report 9201540 (Version 1)
Quarter: 2013Q2

REPORT INFORMATION
  Report Type: Spontaneous
  Country: US (occurrence: US)
  Receive Date: 20130401
  Receipt Date: 20130401
  Transmission Date: 20140414
  Serious: Yes (Other)
  Sender: FDA-Public Use
  Company Number: US-PFIZER INC-2013100158

PATIENT
  Age: 60 Year
  Sex: Female

DRUGS (1)
  1. ESTRING [Suspect]
     Indication: VULVOVAGINAL DRYNESS
     Dosage: 2 MG, ONCE IN THREE MONTHS
     Route: 067
     Dates: start: 201109

REACTIONS (2)
  - Breast cancer female [Unknown]
  - Endometrial hypertrophy [Unknown]
